FAERS Safety Report 12472187 (Version 1)
Quarter: 2016Q2

REPORT INFORMATION
  Report Type: Spontaneous
  Country: CH (occurrence: CH)
  Receive Date: 20160616
  Receipt Date: 20160616
  Transmission Date: 20160815
  Serious: Yes (Hospitalization, Other)
  Sender: FDA-Public Use
  Company Number: CH-PFIZER INC-2016295950

PATIENT
  Age: 41 Year
  Sex: Male

DRUGS (5)
  1. AXOTIDE [Concomitant]
     Active Substance: FLUTICASONE PROPIONATE
     Indication: COUGH
     Dosage: 1 DF (250 UG/INHALATION), 2X/DAY
     Route: 055
     Dates: start: 20151009, end: 20151030
  2. ELTROXIN LF [Concomitant]
     Dosage: 1 DF, 1X/DAY (LONG-TERM: 50 UG 1 DAY/2 AND 100 UG 1 DAY/2)
     Route: 048
  3. HUMALOG [Concomitant]
     Active Substance: INSULIN LISPRO
     Dosage: 1 DF, 1X EVERY 3 DAYS (LONG-TERM: DOSE UNSPECIFIED)
     Route: 058
  4. ATORVASTATIN CALCIUM. [Suspect]
     Active Substance: ATORVASTATIN CALCIUM
     Indication: HYPERCHOLESTEROLAEMIA
     Dosage: 10 MG, 1X/DAY
     Route: 048
     Dates: start: 20151009, end: 20151030
  5. AXOTIDE [Concomitant]
     Active Substance: FLUTICASONE PROPIONATE
     Indication: BRONCHOSPASM

REACTIONS (2)
  - Henoch-Schonlein purpura [Recovered/Resolved]
  - Glomerulonephritis [Recovering/Resolving]

NARRATIVE: CASE EVENT DATE: 20151028
